FAERS Safety Report 5290915-7 (Version None)
Quarter: 2007Q2

REPORT INFORMATION
  Report Type: 
  Country: None (occurrence: None)
  Receive Date: 20070409
  Receipt Date: 20070327
  Transmission Date: 20071010
  Serious: Yes (Other)
  Sender: FDA-Public Use
  Company Number: IE-PFIZER INC-2007025335

PATIENT
  Age: 69 Year
  Sex: Male

DRUGS (9)
  1. LYRICA [Suspect]
     Indication: NEUROPATHY PERIPHERAL
     Route: 048
  2. FUROSEMIDE [Concomitant]
  3. BISOPROLOL [Concomitant]
  4. INSULIN [Concomitant]
  5. DILTIAZEM [Concomitant]
  6. GLYCERYL TRINITRATE [Concomitant]
     Route: 062
  7. NICORANDIL [Concomitant]
  8. ATORVASTATIN CALCIUM [Concomitant]
  9. ALL OTHER THERAPEUTIC PRODUCTS [Concomitant]

REACTIONS (1)
  - CARDIAC FAILURE [None]
